FAERS Safety Report 6382880-6 (Version None)
Quarter: 2009Q3

REPORT INFORMATION
  Report Type: 
  Country: None (occurrence: None)
  Receive Date: 20090928
  Receipt Date: 20090928
  Transmission Date: 20100115
  Serious: Yes (Death)
  Sender: FDA-Public Use
  Company Number: None

PATIENT
  Age: 64 Year
  Sex: Female

DRUGS (1)
  1. TECHNETIUM TC 99M SULFUR COLLOID INJ [Suspect]
     Indication: BREAST CANCER
     Dosage: 1.7 MILLICURIES 5 POKES SQ
     Route: 058
     Dates: start: 20090720, end: 20090720

REACTIONS (2)
  - BACTERIAL INFECTION [None]
  - VOMITING [None]
